FAERS Safety Report 26149484 (Version 1)
Quarter: 2025Q4

REPORT INFORMATION
  Report Type: Report from Study
  Country: EU (occurrence: EU)
  Receive Date: 20251212
  Receipt Date: 20251212
  Transmission Date: 20260117
  Serious: Yes (Death, Life-Threatening, Hospitalization)
  Sender: ALEXION PHARMACEUTICALS
  Company Number: EU-AstraZeneca-CH-01011360A

PATIENT
  Sex: Female
  Weight: 50 kg

DRUGS (3)
  1. ACALABRUTINIB [Suspect]
     Active Substance: ACALABRUTINIB
     Indication: Mantle cell lymphoma
     Dosage: 100 MILLIGRAM, BID
     Route: 065
     Dates: start: 20250917, end: 20251202
  2. BENDAMUSTINE [Suspect]
     Active Substance: BENDAMUSTINE
     Indication: Mantle cell lymphoma
     Dosage: 70 MILLIGRAM/SQ. METER, QMONTH
     Dates: start: 20250917, end: 20251120
  3. RITUXIMAB [Suspect]
     Active Substance: RITUXIMAB
     Indication: Mantle cell lymphoma
     Dosage: 375 MILLIGRAM/SQ. METER, QMONTH
     Dates: start: 20250922, end: 20251016

REACTIONS (1)
  - Adenovirus infection [Fatal]

NARRATIVE: CASE EVENT DATE: 20251203
